FAERS Safety Report 24643157 (Version 1)
Quarter: 2024Q4

REPORT INFORMATION
  Report Type: Spontaneous
  Country: CN (occurrence: CN)
  Receive Date: 20241120
  Receipt Date: 20241120
  Transmission Date: 20250115
  Serious: Yes (Hospitalization, Other)
  Sender: ELI LILLY AND COMPANY
  Company Number: CN-ELI_LILLY_AND_COMPANY-CN202411005630

PATIENT
  Age: 74 Year
  Sex: Female
  Weight: 40 kg

DRUGS (7)
  1. GEMCITABINE HYDROCHLORIDE [Suspect]
     Active Substance: GEMCITABINE HYDROCHLORIDE
     Indication: Renal cancer
     Dosage: 1 G, SINGLE (ON DAY 1)
     Route: 041
     Dates: start: 20241007, end: 20241007
  2. GEMCITABINE HYDROCHLORIDE [Suspect]
     Active Substance: GEMCITABINE HYDROCHLORIDE
     Dosage: 1 G, SINGLE (ON DAY 08)
     Route: 041
     Dates: start: 20241016, end: 20241016
  3. CISPLATIN [Suspect]
     Active Substance: CISPLATIN
     Indication: Renal cancer
     Dosage: 40 MG, SINGLE (ON DAY 01 AND 02)
     Route: 041
     Dates: start: 20241007, end: 20241008
  4. SODIUM CHLORIDE [Concomitant]
     Active Substance: SODIUM CHLORIDE
     Indication: Medication dilution
     Dosage: 100 ML, SINGLE
     Route: 041
     Dates: start: 20241007, end: 20241007
  5. SODIUM CHLORIDE [Concomitant]
     Active Substance: SODIUM CHLORIDE
     Dosage: 500 ML, SINGLE
     Route: 041
     Dates: start: 20241007, end: 20241008
  6. SODIUM CHLORIDE [Concomitant]
     Active Substance: SODIUM CHLORIDE
     Dosage: 500 ML, SINGLE
     Route: 041
     Dates: start: 20241016, end: 20241016
  7. LEUCOGEN [FILGRASTIM] [Concomitant]
     Indication: Prophylaxis
     Dosage: 40 MG, TID
     Route: 048

REACTIONS (4)
  - Abdominal pain [Unknown]
  - Abdominal distension [Unknown]
  - Myelosuppression [Recovering/Resolving]
  - Nausea [Unknown]

NARRATIVE: CASE EVENT DATE: 20241016
